FAERS Safety Report 8140204-8 (Version None)
Quarter: 2012Q1

REPORT INFORMATION
  Report Type: 
  Country: None (occurrence: None)
  Receive Date: 20120216
  Receipt Date: 20120206
  Transmission Date: 20120608
  Serious: No
  Sender: FDA-Public Use
  Company Number: US-BIOGENIDEC-2012BI004857

PATIENT
  Sex: Female

DRUGS (4)
  1. TYSABRI [Suspect]
     Indication: MULTIPLE SCLEROSIS
     Route: 042
     Dates: start: 20100408, end: 20111207
  2. CYMBALTA [Concomitant]
  3. REBIF [Concomitant]
  4. FOCALIN [Concomitant]

REACTIONS (4)
  - FATIGUE [None]
  - ASTHENIA [None]
  - INJECTION SITE PAIN [None]
  - VIRAL INFECTION [None]
